FAERS Safety Report 7910825-3 (Version None)
Quarter: 2011Q4

REPORT INFORMATION
  Report Type: 
  Country: None (occurrence: None)
  Receive Date: 20111114
  Receipt Date: 20111108
  Transmission Date: 20120403
  Serious: Yes (Other)
  Sender: FDA-Public Use
  Company Number: US-BIOGENIDEC-2010BI042753

PATIENT
  Age: 33 Year
  Sex: Female

DRUGS (3)
  1. TYSABRI [Suspect]
     Route: 042
     Dates: start: 20080417, end: 20101118
  2. TYSABRI [Suspect]
     Route: 042
     Dates: start: 20061218, end: 20070828
  3. TYSABRI [Suspect]
     Indication: MULTIPLE SCLEROSIS
     Route: 042
     Dates: start: 20101229

REACTIONS (2)
  - WEIGHT DECREASED [None]
  - PARTIAL SEIZURES WITH SECONDARY GENERALISATION [None]
